FAERS Safety Report 6610687-0 (Version None)
Quarter: 2010Q1

REPORT INFORMATION
  Report Type: 
  Country: None (occurrence: None)
  Receive Date: 20100302
  Receipt Date: 20100223
  Transmission Date: 20100710
  Serious: Yes (Hospitalization)
  Sender: FDA-Public Use
  Company Number: A0847071A

PATIENT
  Age: 40 Year
  Sex: Female
  Weight: 131.4 kg

DRUGS (1)
  1. AVANDIA [Suspect]
     Route: 048
     Dates: start: 19990101, end: 20050101

REACTIONS (5)
  - CARDIAC FAILURE CONGESTIVE [None]
  - HEADACHE [None]
  - RESPIRATORY TRACT INFECTION [None]
  - SINUS DISORDER [None]
  - SWELLING [None]
